FAERS Safety Report 4439203-9 (Version None)
Quarter: 2004Q3

REPORT INFORMATION
  Report Type: 
  Country: None (occurrence: None)
  Receive Date: 20040831
  Receipt Date: 20040817
  Transmission Date: 20050211
  Serious: Yes (Hospitalization)
  Sender: FDA-Public Use
  Company Number: 203205

PATIENT
  Age: 38 Year
  Sex: Female
  Weight: 90.7194 kg

DRUGS (2)
  1. AVONEX [Suspect]
     Indication: MULTIPLE SCLEROSIS
     Dosage: 30 MCG QW IM
     Route: 030
     Dates: start: 20000901, end: 20031201
  2. AVONEX [Suspect]
     Indication: MULTIPLE SCLEROSIS
     Dosage: 30 MCG QW IM
     Route: 030
     Dates: start: 20031201, end: 20040425

REACTIONS (9)
  - ARRHYTHMIA [None]
  - BLOOD PRESSURE INCREASED [None]
  - CARDIAC ENZYMES INCREASED [None]
  - CHEST PAIN [None]
  - CORONARY ARTERY STENOSIS [None]
  - INFLUENZA LIKE ILLNESS [None]
  - NAUSEA [None]
  - PYREXIA [None]
  - SKIN BURNING SENSATION [None]
